FAERS Safety Report 5043800-X (Version None)
Quarter: 2006Q2

REPORT INFORMATION
  Report Type: 
  Country: None (occurrence: None)
  Receive Date: 20060601
  Receipt Date: 20060221
  Transmission Date: 20061013
  Serious: No
  Sender: FDA-Public Use
  Company Number: US200602004549

PATIENT
  Age: 32 Year
  Sex: Male

DRUGS (1)
  1. CYMBALTA [Suspect]
     Indication: PAIN MANAGEMENT
     Dosage: 90 MG
     Dates: start: 20051201, end: 20060101

REACTIONS (1)
  - DEPRESSION [None]
